FAERS Safety Report 8041190-1 (Version None)
Quarter: 2012Q1

REPORT INFORMATION
  Report Type: 
  Country: None (occurrence: None)
  Receive Date: 20120112
  Receipt Date: 20120104
  Transmission Date: 20120608
  Serious: Yes (Other)
  Sender: FDA-Public Use
  Company Number: US-BAYER-2011-062435

PATIENT
  Age: 30 Year
  Sex: Female
  Weight: 62.585 kg

DRUGS (5)
  1. YAZ [Suspect]
     Dosage: UNK
     Dates: start: 20070101, end: 20090901
  2. YASMIN [Suspect]
     Dosage: UNK
     Dates: start: 20070101, end: 20090901
  3. PROBIOTICS [Concomitant]
  4. ANTACIDS [Concomitant]
  5. PRILOSEC [Concomitant]

REACTIONS (6)
  - GALLBLADDER DISORDER [None]
  - CHOLECYSTITIS CHRONIC [None]
  - ANXIETY [None]
  - INJURY [None]
  - PAIN [None]
  - EMOTIONAL DISTRESS [None]
